FAERS Safety Report 5400844-3 (Version None)
Quarter: 2007Q3

REPORT INFORMATION
  Report Type: 
  Country: None (occurrence: None)
  Receive Date: 20070730
  Receipt Date: 20070411
  Transmission Date: 20080115
  Serious: No
  Sender: FDA-Public Use
  Company Number: A0646795A

PATIENT
  Age: 51 Year
  Sex: Female

DRUGS (4)
  1. IMITREX [Suspect]
     Indication: MIGRAINE
     Dosage: 50MG AS REQUIRED
     Route: 048
  2. DITEC [Concomitant]
  3. VALTREX [Concomitant]
  4. BENADRYL [Concomitant]

REACTIONS (1)
  - DRUG INEFFECTIVE [None]
